FAERS Safety Report 15832590 (Version 3)
Quarter: 2019Q3

REPORT INFORMATION
  Report Type: Report from Study
  Country: US (occurrence: US)
  Receive Date: 20190116
  Receipt Date: 20190906
  Transmission Date: 20191004
  Serious: Yes (Hospitalization)
  Sender: FDA-Public Use
  Company Number: US-ACTELION-A-US2019-184775

PATIENT
  Age: 57 Year
  Sex: Female

DRUGS (1)
  1. OPSUMIT [Suspect]
     Active Substance: MACITENTAN
     Indication: PULMONARY ARTERIAL HYPERTENSION
     Dosage: 10 MG, QD
     Route: 048
     Dates: start: 20150714

REACTIONS (4)
  - Ulcer haemorrhage [Not Recovered/Not Resolved]
  - Product dose omission [Unknown]
  - Pulmonary arterial hypertension [Unknown]
  - Transfusion [Unknown]

NARRATIVE: CASE EVENT DATE: 20190102
